FAERS Safety Report 14664675 (Version 2)
Quarter: 2018Q2

REPORT INFORMATION
  Report Type: Spontaneous
  Country: US (occurrence: US)
  Receive Date: 20180321
  Receipt Date: 20180422
  Transmission Date: 20180711
  Serious: Yes (Other)
  Sender: FDA-Public Use
  Company Number: US-APOTEX-2018AP008676

PATIENT
  Age: 36 Year
  Sex: Male

DRUGS (9)
  1. LEVETIRACETAM. [Suspect]
     Active Substance: LEVETIRACETAM
     Indication: MUSCLE CONTRACTIONS INVOLUNTARY
  2. LIDOCAIN                           /00033401/ [Suspect]
     Active Substance: LIDOCAINE
     Indication: PAIN IN EXTREMITY
     Dosage: UNK
     Route: 065
  3. LEVETIRACETAM. [Suspect]
     Active Substance: LEVETIRACETAM
     Indication: PARAESTHESIA
  4. LEVETIRACETAM. [Suspect]
     Active Substance: LEVETIRACETAM
     Indication: PAIN IN EXTREMITY
     Dosage: UNK
     Route: 048
  5. LIDOCAIN                           /00033401/ [Suspect]
     Active Substance: LIDOCAINE
     Indication: PARAESTHESIA
  6. GABAPENTIN. [Suspect]
     Active Substance: GABAPENTIN
     Indication: MUSCLE CONTRACTIONS INVOLUNTARY
  7. LIDOCAIN                           /00033401/ [Suspect]
     Active Substance: LIDOCAINE
     Indication: MUSCLE CONTRACTIONS INVOLUNTARY
  8. GABAPENTIN. [Suspect]
     Active Substance: GABAPENTIN
     Indication: PAIN IN EXTREMITY
     Dosage: UNK
     Route: 048
  9. GABAPENTIN. [Suspect]
     Active Substance: GABAPENTIN
     Indication: PARAESTHESIA

REACTIONS (1)
  - Drug ineffective [Unknown]
